FAERS Safety Report 7577446-6 (Version None)
Quarter: 2011Q2

REPORT INFORMATION
  Report Type: 
  Country: None (occurrence: None)
  Receive Date: 20110628
  Receipt Date: 20090115
  Transmission Date: 20111010
  Serious: Yes (Other)
  Sender: FDA-Public Use
  Company Number: US-BAYER-2011-014388

PATIENT
  Age: 45 Year
  Sex: Male
  Weight: 113 kg

DRUGS (16)
  1. ZINACEF [Concomitant]
     Dosage: 1.5 G, UNK
     Route: 042
     Dates: start: 20031218
  2. HEPARIN [Concomitant]
     Dosage: 40 U
     Route: 042
     Dates: start: 20031218
  3. BLOOD AND RELATED PRODUCTS [Concomitant]
  4. TRASYLOL [Suspect]
     Dosage: 200 ML PUMP PRIME DOSE
     Route: 042
     Dates: start: 20031218, end: 20031218
  5. INSULIN [Concomitant]
     Dosage: 25 UNITS TID, LONG TERM USE
  6. LOPRESSOR [Concomitant]
     Dosage: 50 MG, UNK
     Route: 048
     Dates: start: 20031218
  7. PLAVIX [Concomitant]
     Dosage: 300 MG, UNK
     Route: 048
     Dates: start: 20031218
  8. INSULIN [Concomitant]
     Indication: TYPE 2 DIABETES MELLITUS
     Dosage: UNK
     Dates: start: 20020213
  9. INTEGRILIN [Concomitant]
     Dosage: 18.2 MG, UNK
     Route: 042
     Dates: start: 20031218
  10. LOVENOX [Concomitant]
     Dosage: 30 MG, UNK
     Route: 058
     Dates: start: 20031218
  11. PROTAMINE SULFATE [Concomitant]
     Dosage: 350 MG, UNK
     Route: 042
     Dates: start: 20031218
  12. TRASYLOL [Suspect]
     Indication: CORONARY ARTERY BYPASS
     Dosage: 1 ML
     Route: 042
     Dates: start: 20031218, end: 20031218
  13. TRASYLOL [Suspect]
     Dosage: 50 ML/HOUR INFUSION
     Route: 042
     Dates: start: 20031218, end: 20031218
  14. VANCOMYCIN [Concomitant]
     Dosage: 1700 MG
     Route: 042
     Dates: start: 20031218
  15. CEFAZOLIN [Concomitant]
     Dosage: 1 G, UNK
     Route: 042
     Dates: start: 20031218
  16. PLATELETS [Concomitant]

REACTIONS (13)
  - RENAL FAILURE [None]
  - RENAL IMPAIRMENT [None]
  - RENAL INJURY [None]
  - FLUID RETENTION [None]
  - DEPRESSION [None]
  - CARDIAC FAILURE CONGESTIVE [None]
  - STRESS [None]
  - UNEVALUABLE EVENT [None]
  - FEAR [None]
  - MULTI-ORGAN FAILURE [None]
  - ANXIETY [None]
  - EMOTIONAL DISTRESS [None]
  - PAIN [None]
